FAERS Safety Report 8916422 (Version 3)
Quarter: 2013Q2

REPORT INFORMATION
  Report Type: Other
  Country: GB (occurrence: GB)
  Receive Date: 20121120
  Receipt Date: 20130529
  Transmission Date: 20140414
  Serious: Yes (Other)
  Sender: FDA-Public Use
  Company Number: GB-WATSON-2012-19601

PATIENT
  Age: 64 Year
  Sex: Male

DRUGS (9)
  1. BISOPROLOL (UNKNOWN) [Suspect]
     Indication: BLOOD PRESSURE
     Dosage: 2.5 MG, DAILY
     Route: 048
     Dates: start: 2011, end: 2012
  2. BISOPROLOL (UNKNOWN) [Suspect]
     Dosage: 1.25 MG, DAILY
     Route: 048
     Dates: start: 2012
  3. BISOPROLOL (UNKNOWN) [Suspect]
     Dosage: 1 DF, EVERY OTHER DAY
     Route: 048
  4. CLOPIDOGREL (UNKNOWN) [Suspect]
     Indication: THROMBOCYTOPENIA
     Dosage: UNKNOWN
     Route: 048
  5. VERAPAMIL HYDROCHLORIDE (WATSON LABORATORIES) (VERAPAMIL HYDROCHLORIDE) UNKNOWN, UNK UNK [Suspect]
     Indication: ATRIAL FLUTTER
     Dosage: UNKNOWN
     Route: 048
  6. CYCLOPHOSPHAMIDE [Concomitant]
     Indication: NON-HODGKIN^S LYMPHOMA
     Dosage: UNK,
     Route: 065
  7. DOXORUBICIN [Concomitant]
     Indication: NON-HODGKIN^S LYMPHOMA
     Dosage: UNK,
     Route: 065
  8. PREDNISOLONE [Concomitant]
     Indication: NON-HODGKIN^S LYMPHOMA
     Dosage: UNK,
     Route: 065
  9. VINCRISTINE SULPHATE [Concomitant]
     Indication: NON-HODGKIN^S LYMPHOMA
     Dosage: UNK,
     Route: 065

REACTIONS (6)
  - Atrial flutter [Recovering/Resolving]
  - Dizziness [Recovered/Resolved]
  - Arthralgia [Unknown]
  - Abdominal pain upper [Unknown]
  - Fatigue [Recovered/Resolved]
  - Somnolence [Unknown]
